FAERS Safety Report 7555149-1 (Version None)
Quarter: 2011Q2

REPORT INFORMATION
  Report Type: 
  Country: None (occurrence: None)
  Receive Date: 20110617
  Receipt Date: 20110607
  Transmission Date: 20111010
  Serious: Yes (Hospitalization)
  Sender: FDA-Public Use
  Company Number: US-AMGEN-USACT2011021281

PATIENT
  Age: 44 Year
  Sex: Female

DRUGS (15)
  1. FILGRASTIM [Suspect]
     Indication: BREAST CANCER
     Dosage: 480 A?G, QD
     Route: 058
  2. DEXAMETHASONE [Concomitant]
  3. DOCETAXEL [Concomitant]
     Dosage: UNK
     Dates: end: 20110203
  4. FENTANYL-100 [Concomitant]
  5. PERCOCET [Concomitant]
  6. BEVACIZUMAB [Concomitant]
     Dosage: UNK
     Dates: end: 20110203
  7. MIRALAX [Concomitant]
  8. CITALOPRAM HYDROBROMIDE [Concomitant]
  9. CELEXA [Concomitant]
  10. CYCLOPHOSPHAMIDE [Concomitant]
     Dosage: UNK
     Dates: end: 20110203
  11. VERPAMIL HCL [Concomitant]
  12. ATIVAN [Concomitant]
  13. ALPRAZOLAM [Concomitant]
  14. LAMICTAL [Concomitant]
  15. ONDANSETRON [Concomitant]

REACTIONS (4)
  - NEUTROPHIL COUNT [None]
  - BONE PAIN [None]
  - FEBRILE NEUTROPENIA [None]
  - PAIN [None]
